FAERS Safety Report 15123625 (Version 27)
Quarter: 2022Q2

REPORT INFORMATION
  Report Type: Report from Study
  Country: GB (occurrence: GB)
  Receive Date: 20180710
  Receipt Date: 20220513
  Transmission Date: 20220721
  Serious: Yes (Other)
  Sender: FDA-Public Use
  Company Number: GB-BRISTOL-MYERS SQUIBB COMPANY-BMS-2018-060524

PATIENT
  Sex: Female

DRUGS (13)
  1. EFAVIRENZ [Suspect]
     Active Substance: EFAVIRENZ
     Indication: HIV infection
     Dosage: MATERNAL DOSE: 1 DF, QD
     Route: 048
     Dates: start: 20171006
  2. METFORMIN HYDROCHLORIDE [Suspect]
     Active Substance: METFORMIN HYDROCHLORIDE
     Indication: Product used for unknown indication
     Dosage: UNK
     Route: 065
  3. LABETALOL [Suspect]
     Active Substance: LABETALOL\LABETALOL HYDROCHLORIDE
     Indication: Product used for unknown indication
     Dosage: UNK
     Route: 065
  4. LABETALOL [Suspect]
     Active Substance: LABETALOL\LABETALOL HYDROCHLORIDE
     Dosage: UNK
     Route: 065
  5. FOLIC ACID [Suspect]
     Active Substance: FOLIC ACID
     Indication: Supplementation therapy
     Dosage: UNK
     Route: 065
  6. EMTRICITABINE\TENOFOVIR DISOPROXIL [Suspect]
     Active Substance: EMTRICITABINE\TENOFOVIR DISOPROXIL
     Indication: HIV infection
     Dosage: UNK
     Route: 048
  7. EMTRICITABINE\TENOFOVIR DISOPROXIL [Suspect]
     Active Substance: EMTRICITABINE\TENOFOVIR DISOPROXIL
     Dosage: 1 DOSAGE FORM, QD
     Route: 048
     Dates: start: 20171006, end: 20180205
  8. EMTRICITABINE\TENOFOVIR DISOPROXIL [Suspect]
     Active Substance: EMTRICITABINE\TENOFOVIR DISOPROXIL
     Dosage: 1 DOSAGE FORM, QD
     Route: 065
     Dates: start: 20180205
  9. TRUVADA [Suspect]
     Active Substance: EMTRICITABINE\TENOFOVIR DISOPROXIL FUMARATE
     Indication: HIV infection
     Dosage: 1 DOSAGE FORM, QD 1 TABLET/CAPSULE, QD
     Route: 048
     Dates: start: 20180205
  10. TRUVADA [Suspect]
     Active Substance: EMTRICITABINE\TENOFOVIR DISOPROXIL FUMARATE
     Dosage: 1 DOSAGE FORM, QD 1 TABLET/CAPSULE, QD
     Route: 048
     Dates: start: 20171006, end: 20180205
  11. INSULIN ASPART [Suspect]
     Active Substance: INSULIN ASPART
     Indication: Product used for unknown indication
     Dosage: UNK
     Route: 065
  12. FOLATE SODIUM [Suspect]
     Active Substance: FOLATE SODIUM
     Indication: Supplementation therapy
     Dosage: UNK
     Route: 065
  13. INSULIN ASPART [Suspect]
     Active Substance: INSULIN ASPART
     Indication: Product used for unknown indication
     Dosage: UNK
     Route: 065

REACTIONS (3)
  - Abortion spontaneous [Unknown]
  - Intentional product use issue [Unknown]
  - Maternal exposure during pregnancy [Recovered/Resolved]

NARRATIVE: CASE EVENT DATE: 20180205
